FAERS Safety Report 6784301-8 (Version None)
Quarter: 2010Q2

REPORT INFORMATION
  Report Type: 
  Country: None (occurrence: None)
  Receive Date: 20100622
  Receipt Date: 20100614
  Transmission Date: 20101027
  Serious: Yes (Other)
  Sender: FDA-Public Use
  Company Number: GXKR2010CA06536

PATIENT
  Age: 21 Year
  Sex: Male

DRUGS (4)
  1. CLOZAPINE [Suspect]
     Indication: SCHIZOPHRENIA
     Dosage: 275 MG/DAY
     Route: 065
  2. CLOZAPINE [Interacting]
     Indication: OBSESSIVE-COMPULSIVE DISORDER
     Dosage: TAPERED TO 25 MG/DAY OVER 2 WEEKS
     Route: 065
  3. ARIPIPRAZOLE [Interacting]
     Indication: SCHIZOPHRENIA
     Dosage: 10 MG/DAY
     Route: 065
  4. ARIPIPRAZOLE [Interacting]
     Indication: OBSESSIVE-COMPULSIVE DISORDER

REACTIONS (3)
  - DRUG INTERACTION [None]
  - MENTAL STATUS CHANGES [None]
  - PSYCHOTIC DISORDER [None]
